FAERS Safety Report 9708717 (Version 2)
Quarter: 2013Q4

REPORT INFORMATION
  Report Type: Spontaneous
  Country: US (occurrence: US)
  Receive Date: 20131125
  Receipt Date: 20131212
  Transmission Date: 20140711
  Serious: Yes (Death)
  Sender: FDA-Public Use
  Company Number: US-GLAXOSMITHKLINE-A1051031A

PATIENT
  Age: 15 Year
  Sex: Female

DRUGS (1)
  1. VOTRIENT [Suspect]
     Indication: SOFT TISSUE CANCER
     Dosage: 700MG PER DAY
     Route: 048
     Dates: start: 20130731

REACTIONS (2)
  - Rhabdomyosarcoma [Fatal]
  - Drug ineffective [Unknown]
